FAERS Safety Report 4854287-1 (Version None)
Quarter: 2005Q4

REPORT INFORMATION
  Report Type: 
  Country: None (occurrence: None)
  Receive Date: 20051213
  Receipt Date: 20051213
  Transmission Date: 20060501
  Serious: Yes (Death)
  Sender: FDA-Public Use
  Company Number: None

PATIENT
  Sex: Female
  Weight: 42.6381 kg

DRUGS (2)
  1. OXANDRIN [Suspect]
     Indication: CHEMOTHERAPY
     Dosage: 10 MG (BID PO)
     Route: 048
     Dates: start: 20050908, end: 20051118
  2. OXANDRIN [Suspect]
     Indication: WEIGHT DECREASED
     Dosage: 10 MG (BID PO)
     Route: 048
     Dates: start: 20050908, end: 20051118

REACTIONS (4)
  - CEREBROVASCULAR ACCIDENT [None]
  - INFECTION [None]
  - TREATMENT NONCOMPLIANCE [None]
  - UPPER GASTROINTESTINAL HAEMORRHAGE [None]
